FAERS Safety Report 6326172-X (Version None)
Quarter: 2009Q3

REPORT INFORMATION
  Report Type: 
  Country: None (occurrence: None)
  Receive Date: 20090824
  Receipt Date: 20090824
  Transmission Date: 20100115
  Serious: Yes (Hospitalization)
  Sender: FDA-Public Use
  Company Number: US-PFIZER INC-2009239555

PATIENT
  Sex: Female
  Weight: 62.585 kg

DRUGS (3)
  1. ZOLOFT [Suspect]
     Indication: DEPRESSION
     Dosage: UNIT DOSE: UNKNOWN;
     Dates: end: 20090601
  2. ZOLOFT [Suspect]
     Indication: PANIC ATTACK
  3. XANAX [Concomitant]

REACTIONS (6)
  - ANAEMIA [None]
  - BREAST CANCER [None]
  - BREAST CANCER FEMALE [None]
  - INSOMNIA [None]
  - PAIN [None]
  - RHEUMATOID ARTHRITIS [None]
